FAERS Safety Report 9433892 (Version 2)
Quarter: 2013Q4

REPORT INFORMATION
  Report Type: Spontaneous
  Country: IR (occurrence: IR)
  Receive Date: 20130801
  Receipt Date: 20131016
  Transmission Date: 20140711
  Serious: Yes (Other)
  Sender: FDA-Public Use
  Company Number: PHHY2013IR079269

PATIENT
  Age: 11 Year
  Sex: Male

DRUGS (6)
  1. VALPROIC ACID [Suspect]
     Indication: PANIC DISORDER
  2. VALPROIC ACID [Suspect]
     Indication: BIPOLAR DISORDER
  3. PROPRANOLOL [Suspect]
     Dosage: 10 MG, BID
  4. PROPRANOLOL [Suspect]
     Dosage: 10 MG, LOWER DOSE
  5. RISPERIDONE [Suspect]
     Indication: PANIC DISORDER
  6. RISPERIDONE [Suspect]
     Indication: BIPOLAR DISORDER

REACTIONS (6)
  - Mania [Recovered/Resolved]
  - Insomnia [Recovered/Resolved]
  - Euphoric mood [Recovered/Resolved]
  - Restlessness [Recovered/Resolved]
  - Energy increased [Recovered/Resolved]
  - Tremor [Recovering/Resolving]
